FAERS Safety Report 9570301 (Version 1)
Quarter: 2013Q3

REPORT INFORMATION
  Report Type: Spontaneous
  Country: US (occurrence: US)
  Receive Date: 20130930
  Receipt Date: 20130930
  Transmission Date: 20140515
  Serious: No
  Sender: FDA-Public Use
  Company Number: US-AMGEN-USASP2013064411

PATIENT
  Age: 62 Year
  Sex: Female
  Weight: 61.68 kg

DRUGS (14)
  1. ENBREL [Suspect]
     Indication: PRODUCT USED FOR UNKNOWN INDICATION
     Dosage: 50 MG, QWK
     Route: 058
  2. FLUCONAZOLE [Concomitant]
     Dosage: 100 MG, UNK
  3. GABAPENTIN [Concomitant]
     Dosage: 100 MG, UNK
  4. FENTANYL [Concomitant]
     Dosage: 25 MCG/HR
  5. VENLAFAXINE [Concomitant]
     Dosage: 100 MG, UNK
  6. FOLIC ACID [Concomitant]
     Dosage: 1 MG, UNK
  7. METRONIDAZOL                       /00012501/ [Concomitant]
     Dosage: UNK, 0.75 %
  8. DIAZEPAM [Concomitant]
     Dosage: 10 MG, UNK
  9. CYCLOBENZAPRINE [Concomitant]
     Dosage: 5 MG, UNK
  10. VITAMIN D                          /00107901/ [Concomitant]
     Dosage: 400 UNIT, UNK
  11. CALCIUM + VITAMIN D                /01483701/ [Concomitant]
     Dosage: UNK
  12. ALOE VERA [Concomitant]
     Dosage: UNK
  13. DIFLUNISAL [Concomitant]
     Dosage: 250 MG, UNK
  14. ADVIL                              /00109201/ [Concomitant]
     Dosage: 200 MG, UNK

REACTIONS (2)
  - Injection site pain [Unknown]
  - Nasopharyngitis [Unknown]
